FAERS Safety Report 7711829 (Version 20)
Quarter: 2020Q3

REPORT INFORMATION
  Report Type: Other
  Country: IT (occurrence: IT)
  Receive Date: 20101215
  Receipt Date: 20200722
  Transmission Date: 20201103
  Serious: Yes (Hospitalization, Other)
  Sender: FDA-Public Use
  Company Number: IT-ROCHE-741874

PATIENT
  Age: 9 Year
  Sex: Female
  Weight: 50 kg

DRUGS (14)
  1. TOCILIZUMAB. [Suspect]
     Active Substance: TOCILIZUMAB
     Indication: CASTLEMAN^S DISEASE
     Dosage: ROACTEMRA ? ^20 MG/ML CONCENTRATE FOR SOLUTION FOR INFUSION ? INTRAVENOUS USE ? VIAL (GLASS) 10 ML^
     Route: 042
     Dates: start: 20100930, end: 20110302
  2. TOCILIZUMAB. [Suspect]
     Active Substance: TOCILIZUMAB
     Route: 042
     Dates: start: 20121126
  3. TOCILIZUMAB. [Suspect]
     Active Substance: TOCILIZUMAB
     Route: 042
     Dates: start: 20150702, end: 20151120
  4. TOPAMAX [Concomitant]
     Active Substance: TOPIRAMATE
     Indication: HEADACHE
     Route: 048
     Dates: start: 20110303, end: 20110331
  5. TOCILIZUMAB. [Suspect]
     Active Substance: TOCILIZUMAB
     Route: 042
     Dates: start: 20130726, end: 20150702
  6. TOPAMAX [Concomitant]
     Active Substance: TOPIRAMATE
     Dosage: 25 MG IN THE MORNING AND 50 MG IN THE EVENING
     Route: 048
  7. TOCILIZUMAB. [Suspect]
     Active Substance: TOCILIZUMAB
     Route: 042
     Dates: start: 201606
  8. TOCILIZUMAB. [Suspect]
     Active Substance: TOCILIZUMAB
     Route: 042
     Dates: start: 20101013, end: 20110302
  9. IBUPROFENE [Concomitant]
     Active Substance: IBUPROFEN
     Indication: HEADACHE
     Dosage: IF PAIN
     Dates: start: 20131009
  10. TOCILIZUMAB. [Suspect]
     Active Substance: TOCILIZUMAB
     Route: 042
     Dates: start: 20100331, end: 20121126
  11. TOCILIZUMAB. [Suspect]
     Active Substance: TOCILIZUMAB
     Route: 042
     Dates: start: 20100331, end: 20130726
  12. TOCILIZUMAB. [Suspect]
     Active Substance: TOCILIZUMAB
     Route: 042
     Dates: start: 20110331
  13. PARACETAMOL [Concomitant]
     Active Substance: ACETAMINOPHEN
     Indication: HEADACHE
     Dosage: ROUTE: ENDORECTAL
     Route: 054
     Dates: start: 20110303, end: 20110413
  14. PARACETAMOL [Concomitant]
     Active Substance: ACETAMINOPHEN
     Route: 054
     Dates: start: 20110413, end: 20110608

REACTIONS (7)
  - Abdominal pain upper [Recovered/Resolved]
  - Migraine [Recovered/Resolved]
  - Arthralgia [Recovering/Resolving]
  - Pachymeningitis [Recovered/Resolved]
  - Headache [Unknown]
  - Illness [Recovered/Resolved]
  - Asthenia [Unknown]

NARRATIVE: CASE EVENT DATE: 20101013
